FAERS Safety Report 8266446-9 (Version None)
Quarter: 2012Q2

REPORT INFORMATION
  Report Type: 
  Country: None (occurrence: None)
  Receive Date: 20120406
  Receipt Date: 20120327
  Transmission Date: 20120825
  Serious: Yes (Other)
  Sender: FDA-Public Use
  Company Number: JP-MERCK-1203USA03629

PATIENT
  Age: 21 Day
  Sex: Male

DRUGS (4)
  1. MEROPENEM [Suspect]
     Indication: SEPSIS
     Route: 065
     Dates: start: 20110316, end: 20110321
  2. SEVOFLURANE [Concomitant]
     Route: 065
  3. PRIMAXIN [Suspect]
     Route: 042
     Dates: start: 20110321, end: 20110321
  4. PRIMAXIN [Suspect]
     Indication: SEPSIS
     Route: 042
     Dates: start: 20110711, end: 20110721

REACTIONS (3)
  - MALABSORPTION [None]
  - LACTASE DEFICIENCY [None]
  - LACTOSE INTOLERANCE [None]
